FAERS Safety Report 7119509-5 (Version None)
Quarter: 2010Q4

REPORT INFORMATION
  Report Type: 
  Country: None (occurrence: None)
  Receive Date: 20101123
  Receipt Date: 20101116
  Transmission Date: 20110411
  Serious: Yes (Hospitalization)
  Sender: FDA-Public Use
  Company Number: GB-TEVA-255999ISR

PATIENT
  Age: 77 Year
  Sex: Female

DRUGS (1)
  1. ALENDRONIC ACID [Suspect]
     Route: 048

REACTIONS (2)
  - FALL [None]
  - FEMUR FRACTURE [None]
